FAERS Safety Report 5872954-8 (Version None)
Quarter: 2008Q3

REPORT INFORMATION
  Report Type: 
  Country: None (occurrence: None)
  Receive Date: 20080905
  Receipt Date: 20080826
  Transmission Date: 20090109
  Serious: Yes (Other)
  Sender: FDA-Public Use
  Company Number: US-PFIZER INC-2008071737

PATIENT
  Sex: Female
  Weight: 53.1 kg

DRUGS (10)
  1. CHANTIX [Suspect]
     Indication: SMOKING CESSATION THERAPY
     Dosage: TEXT:EVERY DAY
     Route: 048
     Dates: start: 20070101, end: 20080101
  2. SEROQUEL [Concomitant]
  3. LEXAPRO [Concomitant]
  4. SOMA [Concomitant]
  5. LORTAB [Concomitant]
  6. CARBAMAZEPINE [Concomitant]
  7. OXYCONTIN [Concomitant]
  8. XANAX [Concomitant]
  9. NEXIUM [Concomitant]
  10. VIVELLE [Concomitant]

REACTIONS (4)
  - HALLUCINATION [None]
  - NIGHTMARE [None]
  - WEIGHT DECREASED [None]
  - WEIGHT INCREASED [None]
